FAERS Safety Report 21532713 (Version 1)
Quarter: 2022Q4

REPORT INFORMATION
  Report Type: Spontaneous
  Country: US (occurrence: US)
  Receive Date: 20221101
  Receipt Date: 20221101
  Transmission Date: 20230113
  Serious: No
  Sender: FDA-Public Use
  Company Number: US-BRISTOL-MYERS SQUIBB COMPANY-2022-129929

PATIENT
  Age: 61 Year
  Sex: Female
  Weight: 101.6 kg

DRUGS (1)
  1. REVLIMID [Suspect]
     Active Substance: LENALIDOMIDE
     Indication: Plasma cell myeloma
     Dosage: FREQUENCY- 1 CAPSULES DAILY ON DAYS 1-14 OF A 28-DAY CYCLE. REPEAT.
     Route: 048
     Dates: start: 20220811

REACTIONS (2)
  - Muscle spasms [Unknown]
  - Intentional product use issue [Unknown]
